FAERS Safety Report 8552793 (Version 5)
Quarter: 2013Q4

REPORT INFORMATION
  Report Type: Spontaneous
  Country: US (occurrence: US)
  Receive Date: 20120508
  Receipt Date: 20131108
  Transmission Date: 20140711
  Serious: Yes (Other)
  Sender: FDA-Public Use
  Company Number: US-009507513-1205USA00558

PATIENT
  Sex: Female
  Weight: 108.86 kg

DRUGS (24)
  1. ZOCOR [Suspect]
     Indication: BLOOD CHOLESTEROL ABNORMAL
     Route: 048
  2. LIPITOR [Suspect]
     Indication: BLOOD CHOLESTEROL ABNORMAL
     Dosage: 20 MG, UNK
     Route: 048
     Dates: start: 1993
  3. LIPITOR [Suspect]
     Dosage: 10 MG, QID
  4. CYCLOCORT [Concomitant]
  5. MEVACOR [Concomitant]
     Dosage: UNK UNK, QID
     Route: 048
  6. METOPROLOL TARTRATE [Concomitant]
     Dosage: 50 MG,ONE AND HALF TABLET, BID
     Route: 048
  7. DIOVAN HCT [Concomitant]
     Dosage: 320MG-25MG, DAILY
  8. HYDROCHLOROTHIAZIDE [Concomitant]
     Dosage: 50 MG, PRN
     Route: 048
  9. ASPIRIN [Concomitant]
     Dosage: 325 MG, QD
  10. PERSANTIN [Concomitant]
     Dosage: 75 MG, QID
  11. UBIDECARENONE [Concomitant]
     Dosage: 10 MG, QID
  12. BUMETANIDE [Concomitant]
     Dosage: UNK
  13. ATROVENT [Concomitant]
     Dosage: 0.03 %, BID
     Route: 045
  14. SPIRIVA [Concomitant]
     Dosage: 18 ?G, QD
  15. LORAZEPAM [Concomitant]
     Dosage: 1MG HALF TABLET
  16. MIRAPEX [Concomitant]
     Dosage: 0.5 MG 4 TABLETS DAILY
  17. VITAMIN B COMPLEX [Concomitant]
     Dosage: UNK UNK, DAILY
  18. BENADRYL [Concomitant]
     Dosage: 1 DF, BID
  19. GARLIC [Concomitant]
     Dosage: 1 CAPSULE, DAILY
  20. FLEXERIL [Concomitant]
     Dosage: 5 MG, PRN
  21. LOPERAMIDE HYDROCHLORIDE [Concomitant]
     Dosage: 2 MG, PRN
  22. GLYBURIDE [Concomitant]
     Dosage: 5 MG, 4 TABLETS,DAILY
  23. ZANAFLEX [Concomitant]
     Dosage: 4 MG, QID
  24. JANUVIA [Concomitant]
     Dosage: UNK
     Route: 048

REACTIONS (11)
  - Brain stem stroke [Recovered/Resolved]
  - Muscle spasms [Unknown]
  - Hypersensitivity [Not Recovered/Not Resolved]
  - Memory impairment [Unknown]
  - Adverse event [Unknown]
  - Headache [Unknown]
  - Muscle fatigue [Unknown]
  - Abdominal discomfort [Unknown]
  - Musculoskeletal stiffness [Unknown]
  - Muscle atrophy [Unknown]
  - Amnesia [Unknown]
